APPROVED DRUG PRODUCT: TESLAC
Active Ingredient: TESTOLACTONE
Strength: 250MG
Dosage Form/Route: TABLET;ORAL
Application: N016118 | Product #002
Applicant: BRISTOL MYERS SQUIBB CO
Approved: Approved Prior to Jan 1, 1982 | RLD: No | RS: No | Type: DISCN